FAERS Safety Report 12438929 (Version 2)
Quarter: 2016Q3

REPORT INFORMATION
  Report Type: Report from Study
  Country: CA (occurrence: CA)
  Receive Date: 20160606
  Receipt Date: 20160715
  Transmission Date: 20161109
  Serious: Yes (Other)
  Sender: FDA-Public Use
  Company Number: CA-JNJFOC-20160115531

PATIENT
  Age: 30 Year
  Sex: Female
  Weight: 99 kg

DRUGS (3)
  1. REMICADE [Suspect]
     Active Substance: INFLIXIMAB
     Indication: ANKYLOSING SPONDYLITIS
     Route: 042
     Dates: start: 20160531
  2. BUSCOPAN [Concomitant]
     Active Substance: BUTYLSCOPOLAMINE BROMIDE
     Route: 065
  3. REMICADE [Suspect]
     Active Substance: INFLIXIMAB
     Indication: ANKYLOSING SPONDYLITIS
     Route: 042
     Dates: start: 2011

REACTIONS (11)
  - Arthralgia [Unknown]
  - Sinusitis [Unknown]
  - Infection [Unknown]
  - Biopsy cervix [Unknown]
  - Ectropion of cervix [Recovering/Resolving]
  - Biopsy vulva [Unknown]
  - Lower respiratory tract infection [Unknown]
  - Surgery [Unknown]
  - Endometrial ablation [Unknown]
  - Conjunctivitis [Unknown]
  - Drug ineffective [Unknown]

NARRATIVE: CASE EVENT DATE: 201512
